FAERS Safety Report 14079814 (Version 2)
Quarter: 2017Q4

REPORT INFORMATION
  Report Type: Report from Study
  Country: IT (occurrence: IT)
  Receive Date: 20171012
  Receipt Date: 20171023
  Transmission Date: 20180321
  Serious: Yes (Hospitalization)
  Sender: FDA-Public Use
  Company Number: IT-TEVA-814285ACC

PATIENT
  Age: 57 Year
  Sex: Female

DRUGS (5)
  1. ORAMORPH - 20 MG/ML SOLUZIONE ORALE [Suspect]
     Active Substance: MORPHINE SULFATE
     Indication: INTENTIONAL SELF-INJURY
     Route: 048
     Dates: start: 20170911, end: 20170911
  2. NOZINAN - 25 MG COMPRESSE RIVESTITE CON FILM - SANOFI S.P.A. [Suspect]
     Active Substance: LEVOMEPROMAZINE MALEATE
     Indication: INTENTIONAL SELF-INJURY
     Route: 048
     Dates: start: 20170911, end: 20170911
  3. DALMADORM - 30 MG CAPSULE - MEDA PHARMA S.P.A. [Suspect]
     Active Substance: FLURAZEPAM\FLURAZEPAM HYDROCHLORIDE
     Indication: INTENTIONAL SELF-INJURY
     Route: 048
     Dates: start: 20170911, end: 20170911
  4. QUETIAPINE. [Suspect]
     Active Substance: QUETIAPINE
     Indication: INTENTIONAL SELF-INJURY
     Route: 048
     Dates: start: 20170911, end: 20170911
  5. RIVOTRIL [Suspect]
     Active Substance: CLONAZEPAM
     Indication: INTENTIONAL SELF-INJURY
     Route: 048
     Dates: start: 20170911, end: 20170911

REACTIONS (6)
  - Electrocardiogram QT prolonged [Unknown]
  - Hypotension [Unknown]
  - Hypoxia [Unknown]
  - Drug abuse [Unknown]
  - Hypokalaemia [Unknown]
  - Loss of consciousness [Unknown]

NARRATIVE: CASE EVENT DATE: 20170911
